FAERS Safety Report 7363388-8 (Version None)
Quarter: 2011Q1

REPORT INFORMATION
  Report Type: 
  Country: None (occurrence: None)
  Receive Date: 20110321
  Receipt Date: 20110308
  Transmission Date: 20110831
  Serious: Yes (Hospitalization)
  Sender: FDA-Public Use
  Company Number: US-JNJFOC-20081202198

PATIENT
  Sex: Male
  Weight: 66 kg

DRUGS (6)
  1. INFLIXIMAB [Suspect]
     Route: 042
  2. INFLIXIMAB [Suspect]
     Indication: COLITIS ULCERATIVE
     Route: 042
  3. INFLIXIMAB [Suspect]
     Route: 042
  4. INFLIXIMAB [Suspect]
     Indication: INFLAMMATORY BOWEL DISEASE
     Route: 042
  5. INFLIXIMAB [Suspect]
     Indication: COLITIS
     Route: 042
  6. INFLIXIMAB [Suspect]
     Route: 042

REACTIONS (2)
  - INTESTINAL ANASTOMOSIS [None]
  - COLOSTOMY CLOSURE [None]
